FAERS Safety Report 4569501-X (Version None)
Quarter: 2005Q1

REPORT INFORMATION
  Report Type: 
  Country: None (occurrence: None)
  Receive Date: 20050201
  Receipt Date: 20050121
  Transmission Date: 20050727
  Serious: Yes (Hospitalization, Disabling)
  Sender: FDA-Public Use
  Company Number: 2004SE07283

PATIENT
  Age: 42 Year
  Sex: Female
  Weight: 51 kg

DRUGS (15)
  1. BLOPRESS [Suspect]
     Indication: DIASTOLIC HYPERTENSION
     Dosage: 4 MG QD PO
     Route: 048
     Dates: start: 20040710, end: 20040827
  2. ALDACTONE-A [Suspect]
     Indication: HYPERTENSION
     Dosage: 25 MG QD PO
     Route: 048
     Dates: start: 20040715, end: 20040826
  3. TIAPRIM [Suspect]
     Indication: DEMENTIA ALZHEIMER'S TYPE
     Dosage: 25 MG BID PO
     Route: 048
     Dates: start: 20020318, end: 20040826
  4. ARICEPT [Suspect]
     Indication: DEMENTIA ALZHEIMER'S TYPE
     Dosage: 5 MG QD PO
     Route: 048
     Dates: start: 20020318, end: 20040826
  5. LASIX [Suspect]
     Indication: HYPERTENSION
     Dosage: 20 MG QD PO
     Route: 048
     Dates: start: 20040715, end: 20040721
  6. ADECUT [Concomitant]
  7. MINIPRESS [Concomitant]
  8. BENZALIN [Concomitant]
  9. PANTOSIN [Concomitant]
  10. MAGNESIUM OXIDE [Concomitant]
  11. NEW LECICARBON [Concomitant]
  12. SHINLUCK [Concomitant]
  13. CLARITH [Concomitant]
  14. TRIFLUID (MAINTENANCE MEDIUM WITH MIXED CARBOHYDRATE) [Concomitant]
  15. EFFORTIL [Concomitant]

REACTIONS (26)
  - ABDOMINAL DISTENSION [None]
  - AFFECTIVE DISORDER [None]
  - ASTHENIA [None]
  - BLISTER [None]
  - BLOOD LACTATE DEHYDROGENASE INCREASED [None]
  - BODY TEMPERATURE DECREASED [None]
  - CONDITION AGGRAVATED [None]
  - DEHYDRATION [None]
  - DISSEMINATED INTRAVASCULAR COAGULATION [None]
  - EXTRAPYRAMIDAL DISORDER [None]
  - HAEMATURIA [None]
  - HEART RATE DECREASED [None]
  - HYPERVENTILATION [None]
  - HYPOXIC ENCEPHALOPATHY [None]
  - ILEUS [None]
  - NEUROLEPTIC MALIGNANT SYNDROME [None]
  - OLIGURIA [None]
  - PNEUMONIA [None]
  - POSTURE ABNORMAL [None]
  - RASH PRURITIC [None]
  - RESPIRATORY DISTRESS [None]
  - RHABDOMYOLYSIS [None]
  - SHOCK [None]
  - TACHYCARDIA [None]
  - URINARY RETENTION [None]
  - WEIGHT DECREASED [None]
